FAERS Safety Report 21243366 (Version 1)
Quarter: 2022Q3

REPORT INFORMATION
  Report Type: Other
  Country: CA (occurrence: CA)
  Receive Date: 20220823
  Receipt Date: 20220823
  Transmission Date: 20221026
  Serious: Yes (Hospitalization, Other)
  Sender: FDA-Public Use
  Company Number: CA-APOTEX-2022AP011400

PATIENT
  Sex: Male

DRUGS (12)
  1. PAROXETINE [Suspect]
     Active Substance: PAROXETINE
     Indication: Depression
     Dosage: 10 MILLIGRAM, QD
     Route: 065
  2. PAROXETINE [Suspect]
     Active Substance: PAROXETINE
     Dosage: 20 MILLIGRAM, QD
     Route: 065
  3. BENZTROPINE [Suspect]
     Active Substance: BENZTROPINE
     Indication: Extrapyramidal disorder
     Dosage: 2 MILLIGRAM, QD
     Route: 065
  4. SAPHRIS [Suspect]
     Active Substance: ASENAPINE MALEATE
     Indication: Depression
     Dosage: 5 MILLIGRAM, QD
     Route: 065
  5. SAPHRIS [Suspect]
     Active Substance: ASENAPINE MALEATE
     Dosage: 5 MILLIGRAM, BID
     Route: 065
  6. BISOPROLOL [Concomitant]
     Active Substance: BISOPROLOL
     Indication: Product used for unknown indication
     Dosage: UNK
     Route: 065
  7. DDAVP [Concomitant]
     Active Substance: DESMOPRESSIN ACETATE
     Indication: Product used for unknown indication
     Dosage: UNK
     Route: 065
  8. DIVALPROEX SODIUM [Concomitant]
     Active Substance: DIVALPROEX SODIUM
     Indication: Product used for unknown indication
     Dosage: UNK
     Route: 065
  9. GABAPENTIN [Concomitant]
     Active Substance: GABAPENTIN
     Indication: Product used for unknown indication
     Dosage: UNK
     Route: 065
  10. MEDROXYPROGESTERONE [Concomitant]
     Active Substance: MEDROXYPROGESTERONE
     Indication: Product used for unknown indication
     Dosage: UNK
     Route: 065
  11. QUINAPRIL [Concomitant]
     Active Substance: QUINAPRIL
     Indication: Product used for unknown indication
     Dosage: UNK
     Route: 065
  12. ROSUVASTATIN [Concomitant]
     Active Substance: ROSUVASTATIN
     Indication: Product used for unknown indication
     Dosage: UNK
     Route: 065

REACTIONS (19)
  - Aphasia [Unknown]
  - Ataxia [Unknown]
  - Blood pressure increased [Unknown]
  - Clonus [Unknown]
  - Disorientation [Unknown]
  - Gait disturbance [Unknown]
  - Hallucination, visual [Unknown]
  - Head titubation [Unknown]
  - Intention tremor [Unknown]
  - Muscle rigidity [Unknown]
  - Nystagmus [Unknown]
  - Resting tremor [Unknown]
  - Confusional state [Unknown]
  - Cogwheel rigidity [Unknown]
  - Dry mouth [Unknown]
  - Delirium [Unknown]
  - Mental status changes [Unknown]
  - Extrapyramidal disorder [Unknown]
  - Serotonin syndrome [Unknown]
